FAERS Safety Report 15318840 (Version 1)
Quarter: 2018Q3

REPORT INFORMATION
  Report Type: Spontaneous
  Country: US (occurrence: US)
  Receive Date: 20180819
  Receipt Date: 20180819
  Transmission Date: 20181010
  Serious: Yes (Other)
  Sender: FDA-Public Use
  Company Number: None

PATIENT
  Age: 34 Year
  Weight: 114.3 kg

DRUGS (1)
  1. LEVOTHYROXINE 150MGCG TAB SANDOZ [Suspect]
     Active Substance: LEVOTHYROXINE
     Indication: THYROIDECTOMY
     Dosage: ?          QUANTITY:1 TABLET(S);?
     Route: 048
     Dates: start: 20160604, end: 20180704

REACTIONS (5)
  - Chest pain [None]
  - Hypophagia [None]
  - Hypersomnia [None]
  - Thyroid hormones increased [None]
  - Migraine [None]

NARRATIVE: CASE EVENT DATE: 20171117
